FAERS Safety Report 15556563 (Version 1)
Quarter: 2018Q4

REPORT INFORMATION
  Report Type: Report from Study
  Country: RU (occurrence: RU)
  Receive Date: 20181026
  Receipt Date: 20181026
  Transmission Date: 20190205
  Serious: Yes (Hospitalization)
  Sender: FDA-Public Use
  Company Number: RU-ASTRAZENECA-2018SF38689

PATIENT
  Age: 52 Year
  Sex: Female
  Weight: 115 kg

DRUGS (3)
  1. VALS [Concomitant]
  2. BISOPROLOL [Concomitant]
     Active Substance: BISOPROLOL
  3. FORXIGA [Suspect]
     Active Substance: DAPAGLIFLOZIN
     Indication: TYPE 2 DIABETES MELLITUS
     Route: 048

REACTIONS (3)
  - Paraesthesia oral [Recovered/Resolved]
  - Weight increased [Recovered/Resolved]
  - Blood glucose increased [Recovered/Resolved]
